FAERS Safety Report 8868552 (Version 1)
Quarter: 2012Q4

REPORT INFORMATION
  Report Type: 
  Country: US (occurrence: US)
  Receive Date: 20121026
  Receipt Date: 20121026
  Transmission Date: 20130627
  Serious: No
  Sender: FDA-Public Use
  Company Number: US-B.I. PHARMACEUTICALS,INC./RIDGEFIELD-2012-BP-26236BP

PATIENT
  Age: 47 Year
  Sex: Female
  Weight: 59 kg

DRUGS (5)
  1. COMBIVENT [Suspect]
     Indication: CHRONIC OBSTRUCTIVE PULMONARY DISEASE
     Route: 055
  2. PHENOBARBITAL [Concomitant]
     Indication: CONVULSION
     Dosage: 120 mg
     Route: 048
  3. CLONIDINE [Concomitant]
     Indication: HYPERTENSION
     Dosage: 0.1 mg
     Route: 048
  4. NEXIUM [Concomitant]
     Indication: GASTROOESOPHAGEAL REFLUX DISEASE
     Dosage: 40 mg
     Route: 048
  5. KLONOPIN [Concomitant]
     Indication: CONVULSION
     Dosage: 4 mg
     Route: 048

REACTIONS (3)
  - Dyspnoea [Not Recovered/Not Resolved]
  - Cough [Not Recovered/Not Resolved]
  - Product quality issue [Recovered/Resolved]
